FAERS Safety Report 4527896-7 (Version None)
Quarter: 2004Q4

REPORT INFORMATION
  Report Type: 
  Country: None (occurrence: None)
  Receive Date: 20041123
  Receipt Date: 20040922
  Transmission Date: 20050328
  Serious: Yes (Hospitalization)
  Sender: FDA-Public Use
  Company Number: US-JNJFOC-20040907911

PATIENT
  Age: 23 Year
  Sex: Female

DRUGS (5)
  1. RISPERDAL CONSTA [Suspect]
     Indication: SCHIZOPHRENIA, PARANOID TYPE
     Dosage: 37.5 MG, 1 IN 2 WEEK, INTRA-MUSCULAR; SEE IMAGE
     Route: 030
     Dates: start: 20040827, end: 20040909
  2. RISPERDAL CONSTA [Suspect]
     Indication: SCHIZOPHRENIA, PARANOID TYPE
     Dosage: 37.5 MG, 1 IN 2 WEEK, INTRA-MUSCULAR; SEE IMAGE
     Route: 030
     Dates: start: 20040910
  3. RISPERDAL [Suspect]
     Indication: SCHIZOPHRENIA, PARANOID TYPE
     Dosage: ORAL
     Route: 048
     Dates: start: 20030101
  4. HALDOL [Suspect]
     Indication: SCHIZOPHRENIA, PARANOID TYPE
     Dosage: 10 MG, 1 IN 1 DAY
     Dates: end: 20040801
  5. SEROQUEL [Concomitant]

REACTIONS (5)
  - AMENORRHOEA [None]
  - BLOOD PROLACTIN INCREASED [None]
  - CONDITION AGGRAVATED [None]
  - GALACTORRHOEA [None]
  - SCHIZOPHRENIA [None]
